FAERS Safety Report 13014771 (Version 1)
Quarter: 2016Q4

REPORT INFORMATION
  Report Type: Report from Study
  Country: None (occurrence: CA)
  Receive Date: 20161209
  Receipt Date: 20161209
  Transmission Date: 20170207
  Serious: Yes (Other)
  Sender: FDA-Public Use
  Company Number: CA-ABBVIE-16K-028-1610132-00

PATIENT
  Age: 31 Year
  Sex: Female

DRUGS (3)
  1. AMOXICILLIN. [Concomitant]
     Active Substance: AMOXICILLIN
     Indication: PRODUCT USED FOR UNKNOWN INDICATION
     Route: 048
     Dates: start: 20160629, end: 20160705
  2. HUMIRA [Suspect]
     Active Substance: ADALIMUMAB
     Indication: COLITIS ULCERATIVE
     Route: 058
     Dates: start: 20160330, end: 20160330
  3. SALOFALK [Concomitant]
     Active Substance: MESALAMINE
     Indication: COLITIS ULCERATIVE
     Route: 054
     Dates: start: 20160706, end: 20160720

REACTIONS (7)
  - Uterine rupture [Unknown]
  - Normal newborn [Unknown]
  - Vaginal laceration [Unknown]
  - Exposure during pregnancy [Not Recovered/Not Resolved]
  - Uterine cervical laceration [Unknown]
  - Rash [Not Recovered/Not Resolved]
  - Colitis ulcerative [Unknown]

NARRATIVE: CASE EVENT DATE: 20160412
